FAERS Safety Report 6130440-4 (Version None)
Quarter: 2009Q1

REPORT INFORMATION
  Report Type: 
  Country: None (occurrence: None)
  Receive Date: 20090323
  Receipt Date: 20090305
  Transmission Date: 20090719
  Serious: Yes (Hospitalization)
  Sender: FDA-Public Use
  Company Number: 2009PV037726

PATIENT
  Age: 60 Year
  Sex: Female
  Weight: 101.6057 kg

DRUGS (7)
  1. SYMLIN [Suspect]
     Indication: TYPE 2 DIABETES MELLITUS
     Dosage: 120 MCG; TID; SC, 60 MCG; TID; SC
     Route: 058
     Dates: end: 20090209
  2. SYMLIN [Suspect]
     Indication: TYPE 2 DIABETES MELLITUS
     Dosage: 120 MCG; TID; SC, 60 MCG; TID; SC
     Route: 058
     Dates: start: 20081101
  3. HUMALOG MIX [Concomitant]
  4. HYZAAR [Concomitant]
  5. ANTARA (MICRONIZED) [Concomitant]
  6. ASPIRIN [Concomitant]
  7. ZITHROMAX [Concomitant]

REACTIONS (12)
  - ABDOMINAL DISTENSION [None]
  - ANAEMIA HAEMOLYTIC AUTOIMMUNE [None]
  - ASTHENIA [None]
  - CHOLELITHIASIS [None]
  - COOMBS TEST POSITIVE [None]
  - DIZZINESS [None]
  - DYSPNOEA EXERTIONAL [None]
  - HEPATOMEGALY [None]
  - POLLAKIURIA [None]
  - RETICULOCYTE PERCENTAGE INCREASED [None]
  - SPLENOMEGALY [None]
  - URINE COLOUR ABNORMAL [None]
